FAERS Safety Report 5245366-8 (Version None)
Quarter: 2007Q1

REPORT INFORMATION
  Report Type: 
  Country: None (occurrence: None)
  Receive Date: 20070223
  Receipt Date: 20070219
  Transmission Date: 20070707
  Serious: Yes (Death, Life-Threatening, Hospitalization)
  Sender: FDA-Public Use
  Company Number: HQWYE192412JUN06

PATIENT
  Sex: Male
  Weight: 72 kg

DRUGS (16)
  1. RAPAMUNE [Suspect]
     Indication: PROPHYLAXIS AGAINST TRANSPLANT REJECTION
     Route: 048
     Dates: start: 20060427, end: 20060601
  2. RAPAMUNE [Suspect]
     Indication: HEPATIC NEOPLASM MALIGNANT RECURRENT
  3. RAPAMUNE [Suspect]
     Indication: PROPHYLAXIS
  4. URSODIOL [Concomitant]
     Indication: BLOOD BILIRUBIN INCREASED
     Dosage: UNKNOWN
     Route: 065
  5. NEXIUM [Concomitant]
     Indication: PROPHYLAXIS AGAINST GASTROINTESTINAL ULCER
     Dosage: UNKNOWN
     Route: 065
  6. CELLCEPT [Concomitant]
     Dosage: UNKNOWN
     Route: 065
     Dates: start: 20060427, end: 20060517
  7. CELLCEPT [Concomitant]
     Dosage: ^2X 0,5^
     Route: 065
     Dates: start: 20060825, end: 20060911
  8. PRIMAXIN [Concomitant]
     Indication: CHOLANGITIS
     Dosage: UNKNOWN
     Route: 065
     Dates: start: 20060517, end: 20060522
  9. PRIMAXIN [Concomitant]
     Indication: INFLAMMATION
  10. ALLOPURINOL SODIUM [Concomitant]
     Indication: HYPERURICAEMIA
     Dosage: UNKNOWN
     Route: 065
  11. ENOXAPARIN SODIUM [Concomitant]
     Indication: THROMBOSIS PROPHYLAXIS
     Dosage: UNKNOWN
     Route: 065
     Dates: start: 20060517, end: 20060609
  12. NEORECORMON [Concomitant]
     Indication: NEPHROGENIC ANAEMIA
     Dosage: UNKNOWN
     Route: 065
     Dates: end: 20060720
  13. TORSEMIDE [Concomitant]
     Indication: RENAL FAILURE
     Dosage: UNKNOWN
     Route: 065
  14. TORSEMIDE [Concomitant]
     Indication: DIURETIC THERAPY
  15. CIPROFLOXACIN [Concomitant]
     Indication: CHOLANGITIS
     Dosage: UNKNOWN
     Route: 065
     Dates: start: 20060517, end: 20060528
  16. CIPROFLOXACIN [Concomitant]
     Indication: INFLAMMATION

REACTIONS (22)
  - ACUTE RESPIRATORY DISTRESS SYNDROME [None]
  - BILIARY ANASTOMOSIS COMPLICATION [None]
  - BLOOD ALKALINE PHOSPHATASE INCREASED [None]
  - BLOOD BILIRUBIN INCREASED [None]
  - BRONCHOPNEUMONIA [None]
  - C-REACTIVE PROTEIN INCREASED [None]
  - CHOLANGITIS [None]
  - CHOLESTASIS [None]
  - CYTOMEGALOVIRUS INFECTION [None]
  - DIARRHOEA [None]
  - DISEASE RECURRENCE [None]
  - ENTEROCOCCAL INFECTION [None]
  - GRAND MAL CONVULSION [None]
  - HEPATIC ARTERY STENOSIS [None]
  - MULTI-ORGAN FAILURE [None]
  - PLEURAL EFFUSION [None]
  - PNEUMONIA [None]
  - POSTOPERATIVE WOUND INFECTION [None]
  - PRURITUS [None]
  - SEPSIS [None]
  - SURGICAL PROCEDURE REPEATED [None]
  - TRANSPLANT FAILURE [None]
